FAERS Safety Report 23362712 (Version 3)
Quarter: 2024Q1

REPORT INFORMATION
  Report Type: Spontaneous
  Country: US (occurrence: US)
  Receive Date: 20240103
  Receipt Date: 20240202
  Transmission Date: 20240410
  Serious: Yes (Other)
  Sender: FDA-Public Use
  Company Number: US-BRISTOL-MYERS SQUIBB COMPANY-2024-001208

PATIENT
  Age: 67 Year
  Sex: Female
  Weight: 66.68 kg

DRUGS (3)
  1. POMALYST [Suspect]
     Active Substance: POMALIDOMIDE
     Indication: Plasma cell myeloma
     Dosage: 3WKSON/1WKOFF?21D ON 7D OFF
     Route: 048
     Dates: start: 20230701
  2. DEXAMETHASONE [Concomitant]
     Active Substance: DEXAMETHASONE
     Indication: Product used for unknown indication
  3. CYCLOPHOSPHAMIDE [Concomitant]
     Active Substance: CYCLOPHOSPHAMIDE
     Indication: Product used for unknown indication

REACTIONS (5)
  - Alopecia [Unknown]
  - Plasma cell myeloma [Not Recovered/Not Resolved]
  - Hordeolum [Unknown]
  - Weight increased [Unknown]
  - Muscle spasms [Unknown]
